FAERS Safety Report 9289021 (Version 2)
Quarter: 2013Q2

REPORT INFORMATION
  Report Type: Spontaneous
  Country: US (occurrence: US)
  Receive Date: 20130514
  Receipt Date: 20130521
  Transmission Date: 20140414
  Serious: Yes (Other)
  Sender: FDA-Public Use
  Company Number: US-PFIZER INC-2013146863

PATIENT
  Age: 56 Year
  Sex: Female
  Weight: 52.2 kg

DRUGS (3)
  1. CELEBREX [Suspect]
     Indication: OSTEOARTHRITIS
     Dosage: 200 MG, 2X/DAY
     Dates: start: 20121213
  2. CELEBREX [Suspect]
     Dosage: 200 MG, 2X/DAY
  3. CELEBREX [Suspect]
     Dosage: 200 MG, 2X/DAY
     Dates: start: 20130501, end: 201305

REACTIONS (3)
  - Conjunctival haemorrhage [Recovering/Resolving]
  - Eye pain [Recovering/Resolving]
  - Eye disorder [Recovering/Resolving]
